FAERS Safety Report 18800460 (Version 1)
Quarter: 2021Q1

REPORT INFORMATION
  Report Type: Spontaneous
  Country: CA (occurrence: CA)
  Receive Date: 20210128
  Receipt Date: 20210128
  Transmission Date: 20210419
  Serious: Yes (Life-Threatening, Hospitalization)
  Sender: FDA-Public Use
  Company Number: CA-TEVA-2021-CA-1872929

PATIENT
  Age: 13 Year
  Sex: Female
  Weight: 39 kg

DRUGS (6)
  1. DOMPERIDONE [Concomitant]
     Active Substance: DOMPERIDONE
  2. KEPPRA [Concomitant]
     Active Substance: LEVETIRACETAM
  3. VORICONAZOLE. [Suspect]
     Active Substance: VORICONAZOLE
     Indication: FUNGAL INFECTION
     Dosage: 700 MILLIGRAM DAILY;
     Route: 048
  4. LEVOTHYROXINE. [Concomitant]
     Active Substance: LEVOTHYROXINE
  5. POLYETHYLENE GLYCOL [Concomitant]
     Active Substance: POLYETHYLENE GLYCOLS
  6. MERCAPTOPURINE. [Concomitant]
     Active Substance: MERCAPTOPURINE

REACTIONS (4)
  - X-ray abnormal [Recovered/Resolved]
  - Bone disorder [Recovered/Resolved]
  - Peripheral swelling [Recovered/Resolved]
  - Bone formation increased [Recovered/Resolved]
